FAERS Safety Report 5781112-7 (Version None)
Quarter: 2008Q2

REPORT INFORMATION
  Report Type: 
  Country: None (occurrence: None)
  Receive Date: 20080620
  Receipt Date: 20080611
  Transmission Date: 20081010
  Serious: Yes (Other)
  Sender: FDA-Public Use
  Company Number: US-PFIZER INC-2008050035

PATIENT
  Age: 84 Year
  Sex: Female

DRUGS (4)
  1. CELEBREX [Suspect]
  2. PREDNISONE TAB [Suspect]
     Indication: FACIAL PALSY
  3. ALISKIREN [Suspect]
  4. BENICAR [Suspect]

REACTIONS (5)
  - ASTHMA [None]
  - FACE OEDEMA [None]
  - JOINT SWELLING [None]
  - LIMB DISCOMFORT [None]
  - MALAISE [None]
